FAERS Safety Report 13415007 (Version 1)
Quarter: 2017Q2

REPORT INFORMATION
  Report Type: Spontaneous
  Country: PE (occurrence: PE)
  Receive Date: 20170407
  Receipt Date: 20170407
  Transmission Date: 20170830
  Serious: Yes (Hospitalization, Other)
  Sender: FDA-Public Use
  Company Number: PE-GLAXOSMITHKLINE-PE2017GSK046787

PATIENT
  Sex: Female

DRUGS (1)
  1. SERETIDE [Suspect]
     Active Substance: FLUTICASONE PROPIONATE\SALMETEROL XINAFOATE
     Indication: PULMONARY FIBROSIS
     Dosage: 250 ?G, QID
     Route: 055
     Dates: start: 20141205

REACTIONS (5)
  - Product use in unapproved indication [Unknown]
  - Pulmonary fibrosis [Not Recovered/Not Resolved]
  - Productive cough [Unknown]
  - Condition aggravated [Not Recovered/Not Resolved]
  - Sputum retention [Unknown]
